FAERS Safety Report 23890254 (Version 1)
Quarter: 2024Q2

REPORT INFORMATION
  Report Type: Other
  Country: CN (occurrence: CN)
  Receive Date: 20240523
  Receipt Date: 20240523
  Transmission Date: 20240716
  Serious: Yes (Other)
  Sender: FDA-Public Use
  Company Number: CN-GE HEALTHCARE-2024CSU005337

PATIENT
  Age: 55 Year
  Sex: Female
  Weight: 60 kg

DRUGS (2)
  1. OMNIPAQUE [Suspect]
     Active Substance: IOHEXOL
     Indication: Angiogram
     Dosage: 105 GM, TOTAL
     Route: 013
     Dates: start: 20240509, end: 20240509
  2. OMNIPAQUE [Suspect]
     Active Substance: IOHEXOL
     Indication: Arterial angioplasty

REACTIONS (9)
  - Dry throat [Recovered/Resolved]
  - Lacrimation increased [Recovered/Resolved]
  - Sneezing [Recovered/Resolved]
  - Contrast media allergy [Recovered/Resolved]
  - Rash erythematous [Recovered/Resolved]
  - Rash pruritic [Recovered/Resolved]
  - Eyelid oedema [Recovered/Resolved]
  - Swelling face [Recovered/Resolved]
  - Throat irritation [Recovered/Resolved]

NARRATIVE: CASE EVENT DATE: 20240509
